FAERS Safety Report 4304374-1 (Version None)
Quarter: 2004Q1

REPORT INFORMATION
  Report Type: 
  Country: None (occurrence: None)
  Receive Date: 20040224
  Receipt Date: 20040213
  Transmission Date: 20041129
  Serious: Yes (Death)
  Sender: FDA-Public Use
  Company Number: USA-2003-0007535

PATIENT
  Age: 35 Year
  Sex: Male
  Weight: 68.5 kg

DRUGS (4)
  1. OXYCODONE HCL [Suspect]
  2. ACETAMINOPHEN [Suspect]
  3. PHENYTOIN [Suspect]
  4. PROPOXYPHENE HCL [Suspect]

REACTIONS (5)
  - CARDIAC ARREST [None]
  - CARDIOMEGALY [None]
  - COLON CANCER [None]
  - DRUG SCREEN POSITIVE [None]
  - RENAL FAILURE [None]
